FAERS Safety Report 4766489-3 (Version None)
Quarter: 2005Q3

REPORT INFORMATION
  Report Type: 
  Country: None (occurrence: None)
  Receive Date: 20050909
  Receipt Date: 20050829
  Transmission Date: 20060218
  Serious: Yes (Hospitalization)
  Sender: FDA-Public Use
  Company Number: 2005121500

PATIENT
  Age: 18 Year
  Sex: Female

DRUGS (1)
  1. SOBELIN (CLINDAMYCIN HYDROCHLORIDE) [Suspect]
     Indication: SINUSITIS
     Dosage: ORAL
     Route: 048
     Dates: start: 20041201

REACTIONS (4)
  - DYSARTHRIA [None]
  - GAIT DISTURBANCE [None]
  - LYMPHOCYTOSIS [None]
  - MUSCLE SPASTICITY [None]
